FAERS Safety Report 11124239 (Version 1)
Quarter: 2015Q2

REPORT INFORMATION
  Report Type: Spontaneous
  Country: US (occurrence: None)
  Receive Date: 20150518
  Receipt Date: 20150518
  Transmission Date: 20150821
  Serious: Yes (Other)
  Sender: FDA-Public Use
  Company Number: 001922709A

PATIENT
  Age: 20 Year
  Sex: Male

DRUGS (4)
  1. X-OUT WASH-IN TREATMENT [Suspect]
     Active Substance: BENZOYL PEROXIDE
     Indication: ACNE
     Dosage: TWICE DAILY DERMAL
     Route: 061
     Dates: start: 20150410, end: 20150417
  2. XOUT SHINE CONTROL [Suspect]
     Active Substance: SALICYLIC ACID
     Route: 048
  3. X OUT SPOT CORRECTOR [Suspect]
     Active Substance: SULFUR
     Indication: ACNE
     Dosage: TWICE DAILY DERMAL
     Route: 061
     Dates: start: 20150410, end: 20150417
  4. X OUT CLEANSING BODY BAR [Suspect]
     Active Substance: SALICYLIC ACID
     Indication: ACNE
     Dosage: TWICE DAILY DERMAL
     Route: 061
     Dates: start: 20150410, end: 20150417

REACTIONS (2)
  - Acne [None]
  - Hypersensitivity [None]

NARRATIVE: CASE EVENT DATE: 20150410
